FAERS Safety Report 16304472 (Version 1)
Quarter: 2019Q2

REPORT INFORMATION
  Report Type: Spontaneous
  Country: US (occurrence: US)
  Receive Date: 20190405
  Receipt Date: 20190405
  Transmission Date: 20190711
  Serious: No
  Sender: FDA-Public Use
  Company Number: None

PATIENT
  Age: 65 Year
  Sex: Female
  Weight: 118.84 kg

DRUGS (21)
  1. OZEMPIC [Concomitant]
     Active Substance: SEMAGLUTIDE
  2. HYDROCODONE [Concomitant]
     Active Substance: HYDROCODONE
  3. LEVEMIR [Concomitant]
     Active Substance: INSULIN DETEMIR
  4. FUROSEMIDE. [Concomitant]
     Active Substance: FUROSEMIDE
  5. VITAMIN D [Concomitant]
     Active Substance: VITAMIN D NOS
  6. SPIRONOLACTION [Concomitant]
  7. LISINPORIL [Concomitant]
  8. ALORAVASTATIN [Concomitant]
  9. ZINC. [Concomitant]
     Active Substance: ZINC
  10. ASPIR [Concomitant]
     Active Substance: ASPIRIN
  11. ZINC. [Concomitant]
     Active Substance: ZINC
  12. BUMEX [Concomitant]
     Active Substance: BUMETANIDE
  13. HUMALOG [Concomitant]
     Active Substance: INSULIN LISPRO
  14. VITAMIN D [Concomitant]
     Active Substance: VITAMIN D NOS
  15. BUPOPION [Concomitant]
     Active Substance: BUPROPION
  16. YARDRONCE [Concomitant]
  17. ONGLYZA [Concomitant]
     Active Substance: SAXAGLIPTIN HYDROCHLORIDE
  18. LYRICA [Concomitant]
     Active Substance: PREGABALIN
  19. ELIQUIS [Concomitant]
     Active Substance: APIXABAN
  20. CARVEDILOL. [Concomitant]
     Active Substance: CARVEDILOL
  21. TRAZODONE [Suspect]
     Active Substance: TRAZODONE HYDROCHLORIDE
     Indication: MUSCLE RELAXANT THERAPY
     Route: 048
     Dates: start: 20190315, end: 20190317

REACTIONS (2)
  - Dry mouth [None]
  - Feeling drunk [None]

NARRATIVE: CASE EVENT DATE: 201903
